FAERS Safety Report 26125941 (Version 1)
Quarter: 2025Q4

REPORT INFORMATION
  Report Type: Spontaneous
  Country: US (occurrence: US)
  Receive Date: 20251205
  Receipt Date: 20251205
  Transmission Date: 20260117
  Serious: No
  Sender: MYLAN
  Company Number: US-MYLANLABS-2025M1101363

PATIENT
  Age: 62 Year
  Sex: Female
  Weight: 52.16 kg

DRUGS (8)
  1. NEURONTIN [Suspect]
     Active Substance: GABAPENTIN
     Indication: Multiple sclerosis
     Dosage: UNK, 5XD (5 TIMES A DAY)
     Dates: start: 20251105, end: 20251124
  2. NEURONTIN [Suspect]
     Active Substance: GABAPENTIN
     Dosage: UNK, 5XD (5 TIMES A DAY)
     Route: 048
     Dates: start: 20251105, end: 20251124
  3. NEURONTIN [Suspect]
     Active Substance: GABAPENTIN
     Dosage: UNK, 5XD (5 TIMES A DAY)
     Route: 048
     Dates: start: 20251105, end: 20251124
  4. NEURONTIN [Suspect]
     Active Substance: GABAPENTIN
     Dosage: UNK, 5XD (5 TIMES A DAY)
     Dates: start: 20251105, end: 20251124
  5. BACLOFEN [Concomitant]
     Active Substance: BACLOFEN
     Dosage: UNK, TID (3 TIMES A DAY)
  6. BACLOFEN [Concomitant]
     Active Substance: BACLOFEN
     Dosage: UNK, TID (3 TIMES A DAY)
     Route: 048
  7. BACLOFEN [Concomitant]
     Active Substance: BACLOFEN
     Dosage: UNK, TID (3 TIMES A DAY)
     Route: 048
  8. BACLOFEN [Concomitant]
     Active Substance: BACLOFEN
     Dosage: UNK, TID (3 TIMES A DAY)

REACTIONS (6)
  - Stomatitis [Not Recovered/Not Resolved]
  - Gingival recession [Not Recovered/Not Resolved]
  - Vision blurred [Not Recovered/Not Resolved]
  - Dizziness [Not Recovered/Not Resolved]
  - Pruritus [Not Recovered/Not Resolved]
  - Product use in unapproved indication [Unknown]

NARRATIVE: CASE EVENT DATE: 20251101
